FAERS Safety Report 20638406 (Version 2)
Quarter: 2022Q2

REPORT INFORMATION
  Report Type: Other
  Country: CA (occurrence: CA)
  Receive Date: 20220325
  Receipt Date: 20220428
  Transmission Date: 20220720
  Serious: Yes (Hospitalization, Other)
  Sender: FDA-Public Use
  Company Number: CA-ASTELLAS-2022US011234

PATIENT
  Age: 56 Year
  Sex: Male

DRUGS (6)
  1. PROGRAF [Suspect]
     Active Substance: TACROLIMUS
     Indication: Immunosuppression
     Dosage: 0.5 MG, ONCE DAILY (FORMULATION: TABLET)
     Route: 065
  2. PROGRAF [Suspect]
     Active Substance: TACROLIMUS
     Indication: Immunosuppression
     Route: 065
  3. CEFTAZIDIME [Suspect]
     Active Substance: CEFTAZIDIME
     Indication: Sepsis
     Dosage: UNK UNK, UNKNOWN FREQ. (POWDER FOR SOLUTION)
     Route: 065
  4. VANCOMYCIN [Suspect]
     Active Substance: VANCOMYCIN
     Indication: Sepsis
     Dosage: UNK UNK, UNKNOWN FREQ.
     Route: 065
  5. MYCOPHENOLATE MOFETIL [Concomitant]
     Active Substance: MYCOPHENOLATE MOFETIL
     Indication: Immunosuppression
     Dosage: UNK UNK, UNKNOWN FREQ.
     Route: 065
  6. PREDNISONE [Concomitant]
     Active Substance: PREDNISONE
     Indication: Immunosuppression
     Dosage: UNK UNK, UNKNOWN FREQ.
     Route: 065

REACTIONS (3)
  - Sensitisation [Recovered/Resolved]
  - Anaphylactic reaction [Recovered/Resolved]
  - Haemodynamic instability [Recovered/Resolved]
